FAERS Safety Report 8553335-5 (Version None)
Quarter: 2012Q3

REPORT INFORMATION
  Report Type: 
  Country: None (occurrence: None)
  Receive Date: 20120731
  Receipt Date: 20120718
  Transmission Date: 20120928
  Serious: Yes (Other)
  Sender: FDA-Public Use
  Company Number: JP-ROCHE-1003722

PATIENT
  Sex: Female
  Weight: 53 kg

DRUGS (6)
  1. ACTEMRA [Suspect]
     Indication: RHEUMATOID ARTHRITIS
     Route: 041
     Dates: start: 20100301, end: 20110829
  2. PREDNISOLONE [Concomitant]
     Indication: RHEUMATOID ARTHRITIS
     Route: 048
     Dates: start: 20090803
  3. OLOPATADINE HCL [Concomitant]
     Dosage: DOSAGE IS UNCERTAIN.
     Route: 048
     Dates: start: 20090817, end: 20120116
  4. RHEUMATREX [Suspect]
     Indication: RHEUMATOID ARTHRITIS
     Route: 048
     Dates: start: 20090114, end: 20110606
  5. FAMOTIDINE [Concomitant]
     Dosage: DOSAGE IS UNCERTAIN.
     Route: 048
     Dates: start: 20090817, end: 20120116
  6. ACTEMRA [Suspect]
     Route: 041
     Dates: start: 20110620, end: 20110926

REACTIONS (3)
  - MALAISE [None]
  - HEPATITIS C [None]
  - HEPATIC FUNCTION ABNORMAL [None]
